FAERS Safety Report 20482235 (Version 1)
Quarter: 2022Q1

REPORT INFORMATION
  Report Type: Spontaneous
  Country: PT (occurrence: PT)
  Receive Date: 20220216
  Receipt Date: 20220216
  Transmission Date: 20220424
  Serious: Yes (Hospitalization, Other)
  Sender: FDA-Public Use
  Company Number: PT-SUN PHARMACEUTICAL INDUSTRIES LTD-2022RR-327066

PATIENT
  Age: 39 Year
  Sex: Male

DRUGS (17)
  1. ESCITALOPRAM [Suspect]
     Active Substance: ESCITALOPRAM OXALATE
     Indication: Memory impairment
     Dosage: UNK
     Route: 065
  2. ESCITALOPRAM [Suspect]
     Active Substance: ESCITALOPRAM OXALATE
     Indication: Hallucination, visual
  3. ESCITALOPRAM [Suspect]
     Active Substance: ESCITALOPRAM OXALATE
     Indication: Psychomotor hyperactivity
  4. LEVETIRACETAM [Suspect]
     Active Substance: LEVETIRACETAM
     Indication: Neurological symptom
     Dosage: 500 MILLIGRAM, BID
     Route: 065
  5. OLANZAPINE [Suspect]
     Active Substance: OLANZAPINE
     Indication: Memory impairment
     Dosage: UNK
     Route: 065
  6. OLANZAPINE [Suspect]
     Active Substance: OLANZAPINE
     Indication: Hallucination, visual
  7. OLANZAPINE [Suspect]
     Active Substance: OLANZAPINE
     Indication: Psychomotor hyperactivity
  8. CLONAZEPAM [Suspect]
     Active Substance: CLONAZEPAM
     Indication: Memory impairment
     Dosage: UNK
     Route: 065
  9. CLONAZEPAM [Suspect]
     Active Substance: CLONAZEPAM
     Indication: Hallucination, visual
  10. CLONAZEPAM [Suspect]
     Active Substance: CLONAZEPAM
     Indication: Psychomotor hyperactivity
  11. AMITRIPTYLINE [Suspect]
     Active Substance: AMITRIPTYLINE
     Indication: Memory impairment
     Dosage: UNK
     Route: 065
  12. AMITRIPTYLINE [Suspect]
     Active Substance: AMITRIPTYLINE
     Indication: Hallucination, visual
  13. AMITRIPTYLINE [Suspect]
     Active Substance: AMITRIPTYLINE
     Indication: Psychomotor hyperactivity
  14. AMPHOTERICIN B [Suspect]
     Active Substance: AMPHOTERICIN B
     Indication: Cryptococcosis
     Dosage: UNK
     Route: 065
  15. HYDROCORTISONE [Suspect]
     Active Substance: HYDROCORTISONE
     Indication: Hypotension
     Dosage: UNK
     Route: 065
  16. HYDROCORTISONE [Suspect]
     Active Substance: HYDROCORTISONE
     Indication: Sinus tachycardia
  17. FLUCYTOSINE [Suspect]
     Active Substance: FLUCYTOSINE
     Indication: Cryptococcosis
     Dosage: UNK
     Route: 065

REACTIONS (5)
  - Drug ineffective [Unknown]
  - Therapeutic product effect incomplete [Unknown]
  - Hypotension [Unknown]
  - Sinus tachycardia [Unknown]
  - Depressed level of consciousness [Unknown]
